FAERS Safety Report 12642009 (Version 1)
Quarter: 2016Q3

REPORT INFORMATION
  Report Type: Spontaneous
  Country: US (occurrence: ES)
  Receive Date: 20160810
  Receipt Date: 20160810
  Transmission Date: 20161109
  Serious: Yes (Other)
  Sender: FDA-Public Use
  Company Number: ES-FRI-1000084255

PATIENT
  Age: 18 Year
  Sex: Male

DRUGS (4)
  1. ASENAPINE [Suspect]
     Active Substance: ASENAPINE
     Dosage: 5 MG
     Route: 060
  2. ASENAPINE [Suspect]
     Active Substance: ASENAPINE
     Dosage: 5 MG
     Route: 060
  3. ASENAPINE [Suspect]
     Active Substance: ASENAPINE
     Dosage: 2.5 MG
     Route: 060
  4. ASENAPINE [Suspect]
     Active Substance: ASENAPINE
     Indication: PRODUCT USED FOR UNKNOWN INDICATION
     Dosage: 10 MG
     Route: 060
     Dates: start: 201509

REACTIONS (5)
  - Epilepsy [Recovered/Resolved]
  - Sedation [Recovered/Resolved]
  - Wrong technique in product usage process [Unknown]
  - Incorrect dose administered [Unknown]
  - Seizure [Recovered/Resolved]

NARRATIVE: CASE EVENT DATE: 2015
